FAERS Safety Report 14678289 (Version 8)
Quarter: 2020Q2

REPORT INFORMATION
  Report Type: Report from Study
  Country: DE (occurrence: DE)
  Receive Date: 20180326
  Receipt Date: 20200515
  Transmission Date: 20200713
  Serious: Yes (Hospitalization)
  Sender: FDA-Public Use
  Company Number: DE-ACCORD-064861

PATIENT
  Age: 66 Year
  Sex: Female
  Weight: 47 kg

DRUGS (2)
  1. DOCETAXEL. [Suspect]
     Active Substance: DOCETAXEL
     Indication: LUNG ADENOCARCINOMA
     Dosage: DOSE 1 (UNIT UNKNOWN)?TOTAL DAILY DOSE: 60 MG/M2 BSA AND 75 MG/M2 BSA
     Route: 042
     Dates: start: 20170925
  2. VARGATEF [Suspect]
     Active Substance: NINTEDANIB
     Indication: LUNG ADENOCARCINOMA
     Dosage: DAILY DOSE: 400 MG MILLIGRAM(S) EVERY DAY
     Route: 048
     Dates: start: 20170926

REACTIONS (13)
  - Diarrhoea [Recovered/Resolved]
  - Nausea [Recovered/Resolved]
  - White blood cell count decreased [Unknown]
  - Blood potassium increased [Unknown]
  - Constipation [Not Recovered/Not Resolved]
  - Dysphagia [Recovered/Resolved]
  - Blood alkaline phosphatase increased [Unknown]
  - Vomiting [Recovered/Resolved]
  - Anaemia [Recovered/Resolved]
  - Alanine aminotransferase increased [Unknown]
  - Decreased appetite [Recovered/Resolved]
  - Hypocalcaemia [Recovered/Resolved]
  - Platelet count decreased [Recovered/Resolved]

NARRATIVE: CASE EVENT DATE: 20171002
